FAERS Safety Report 14152565 (Version 1)
Quarter: 2017Q4

REPORT INFORMATION
  Report Type: Spontaneous
  Country: GB (occurrence: GB)
  Receive Date: 20171102
  Receipt Date: 20171102
  Transmission Date: 20180321
  Serious: Yes (Life-Threatening, Other)
  Sender: FDA-Public Use
  Company Number: GB-JNJFOC-20171100273

PATIENT
  Age: 69 Year
  Sex: Female
  Weight: 65.3 kg

DRUGS (3)
  1. GLUCOSAMINE [Concomitant]
     Active Substance: GLUCOSAMINE
     Route: 048
  2. XARELTO [Suspect]
     Active Substance: RIVAROXABAN
     Indication: PROPHYLAXIS
     Route: 048
     Dates: start: 20171009
  3. CHONDROITIN [Concomitant]
     Active Substance: CHONDROITIN
     Route: 048

REACTIONS (1)
  - Deep vein thrombosis [Recovering/Resolving]

NARRATIVE: CASE EVENT DATE: 20171009
